FAERS Safety Report 21916849 (Version 2)
Quarter: 2023Q1

REPORT INFORMATION
  Report Type: Spontaneous
  Country: AU (occurrence: AU)
  Receive Date: 20230126
  Receipt Date: 20230201
  Transmission Date: 20230418
  Serious: Yes (Death, Life-Threatening, Hospitalization, Other)
  Sender: FDA-Public Use
  Company Number: AU-SA-2023SA023946

PATIENT
  Age: 55 Year
  Sex: Male

DRUGS (13)
  1. ANTI-THYMOCYTE GLOBULIN (RABBIT) NOS [Suspect]
     Active Substance: LAPINE T-LYMPHOCYTE IMMUNE GLOBULIN
     Indication: Immunosuppressant drug therapy
     Dosage: UNK
  2. PREDNISONE [Suspect]
     Active Substance: PREDNISONE
     Indication: Immunosuppressant drug therapy
     Dosage: UNK
  3. MYCOPHENOLATE MOFETIL [Suspect]
     Active Substance: MYCOPHENOLATE MOFETIL
     Indication: Immunosuppressant drug therapy
     Dosage: UNK
  4. TACROLIMUS [Suspect]
     Active Substance: TACROLIMUS
     Indication: Immunosuppressant drug therapy
     Dosage: UNK
  5. BELATACEPT [Suspect]
     Active Substance: BELATACEPT
     Indication: Immunosuppressant drug therapy
     Dosage: UNK
  6. ASPIRIN [Concomitant]
     Active Substance: ASPIRIN
     Dosage: UNK
  7. ATORVASTATIN [Concomitant]
     Active Substance: ATORVASTATIN
     Dosage: UNK
  8. LABETALOL [Concomitant]
     Active Substance: LABETALOL\LABETALOL HYDROCHLORIDE
     Dosage: UNK
  9. NIFEDIPINE [Concomitant]
     Active Substance: NIFEDIPINE
     Dosage: UNK
  10. NIFEDIPINE [Concomitant]
     Active Substance: NIFEDIPINE
  11. SULFAMETHOXAZOLE\TRIMETHOPRIM [Concomitant]
     Active Substance: SULFAMETHOXAZOLE\TRIMETHOPRIM
     Indication: Prophylaxis
     Dosage: UNK
  12. VALGANCICLOVIR [Concomitant]
     Active Substance: VALGANCICLOVIR
     Indication: Cytomegalovirus infection
     Dosage: UNK
  13. THYMOCYTE IMMUNE GLOBULIN NOS [Suspect]
     Active Substance: THYMOCYTE IMMUNE GLOBULIN NOS
     Indication: Immunosuppressant drug therapy

REACTIONS (37)
  - Disseminated tuberculosis [Fatal]
  - Fatigue [Fatal]
  - Pulmonary mass [Fatal]
  - Asthenia [Fatal]
  - Abdominal discomfort [Fatal]
  - Decreased appetite [Fatal]
  - Dizziness [Fatal]
  - Gait disturbance [Fatal]
  - Dysphagia [Fatal]
  - Odynophagia [Fatal]
  - Nausea [Fatal]
  - Lethargy [Fatal]
  - Malaise [Fatal]
  - Dyspnoea [Fatal]
  - Rales [Fatal]
  - Pleural effusion [Fatal]
  - Hilar lymphadenopathy [Fatal]
  - Lymphadenopathy mediastinal [Fatal]
  - Pulmonary granuloma [Fatal]
  - Weight decreased [Fatal]
  - Cachexia [Fatal]
  - Hypophagia [Fatal]
  - Mucosal dryness [Fatal]
  - Pyrexia [Fatal]
  - Pseudomonas infection [Unknown]
  - Cardiomyopathy [Fatal]
  - Cardiogenic shock [Fatal]
  - Acute kidney injury [Unknown]
  - Cytomegalovirus infection [Unknown]
  - Septic shock [Unknown]
  - Hypotension [Unknown]
  - Chromaturia [Unknown]
  - Arteriosclerosis coronary artery [Unknown]
  - Coronary artery stenosis [Unknown]
  - Fall [Unknown]
  - Splenomegaly [Unknown]
  - Hypercalcaemia [Unknown]
